FAERS Safety Report 6571620-3 (Version None)
Quarter: 2010Q1

REPORT INFORMATION
  Report Type: 
  Country: None (occurrence: None)
  Receive Date: 20100205
  Receipt Date: 20100126
  Transmission Date: 20100710
  Serious: Yes (Other)
  Sender: FDA-Public Use
  Company Number: SE-ELI_LILLY_AND_COMPANY-SE201001005456

PATIENT
  Sex: Female

DRUGS (6)
  1. BYETTA [Suspect]
     Indication: TYPE 2 DIABETES MELLITUS
     Dosage: 5 UG, 2/D
     Dates: start: 20091109, end: 20091125
  2. METFORMIN HCL [Concomitant]
     Dosage: 850 MG, 3/D
  3. NOVORAPID [Concomitant]
     Dosage: 30 U, EACH MORNING
  4. NOVORAPID [Concomitant]
     Dosage: 12 U, DAILY (1/D)
  5. NOVORAPID [Concomitant]
     Dosage: 24 U, EACH EVENING
  6. LEVEMIR [Concomitant]
     Dosage: 84 U, EACH EVENING

REACTIONS (6)
  - CEREBROVASCULAR ACCIDENT [None]
  - DIZZINESS [None]
  - HEADACHE [None]
  - NAUSEA [None]
  - OFF LABEL USE [None]
  - VOMITING [None]
